FAERS Safety Report 6929907-8 (Version None)
Quarter: 2010Q3

REPORT INFORMATION
  Report Type: 
  Country: None (occurrence: None)
  Receive Date: 20100813
  Receipt Date: 20100802
  Transmission Date: 20110219
  Serious: Yes (Hospitalization)
  Sender: FDA-Public Use
  Company Number: 015665

PATIENT
  Sex: Female
  Weight: 87.5 kg

DRUGS (4)
  1. CERTOLIZUMAB PEGOL (CERTOLIZUMAB PEGOL) [Suspect]
     Indication: RHEUMATOID ARTHRITIS
     Dosage: SEE IMAGE; SUBCUTANEOUS
     Route: 058
     Dates: start: 20060120, end: 20060510
  2. CERTOLIZUMAB PEGOL (CERTOLIZUMAB PEGOL) [Suspect]
     Indication: RHEUMATOID ARTHRITIS
     Dosage: SEE IMAGE; SUBCUTANEOUS
     Route: 058
     Dates: start: 20060510, end: 20071226
  3. CERTOLIZUMAB PEGOL (CERTOLIZUMAB PEGOL) [Suspect]
     Indication: RHEUMATOID ARTHRITIS
     Dosage: SEE IMAGE; SUBCUTANEOUS
     Route: 058
     Dates: start: 20080102, end: 20100714
  4. CERTOLIZUMAB PEGOL (CERTOLIZUMAB PEGOL) [Suspect]
     Indication: RHEUMATOID ARTHRITIS
     Dosage: SEE IMAGE; SUBCUTANEOUS
     Route: 058
     Dates: start: 20100727

REACTIONS (8)
  - CHRONIC OBSTRUCTIVE PULMONARY DISEASE [None]
  - CONDITION AGGRAVATED [None]
  - COUGH [None]
  - DYSPNOEA [None]
  - GLAUCOMA [None]
  - PNEUMONIA [None]
  - PYREXIA [None]
  - TOTAL LUNG CAPACITY DECREASED [None]
